FAERS Safety Report 22388930 (Version 3)
Quarter: 2024Q1

REPORT INFORMATION
  Report Type: Spontaneous
  Country: JP (occurrence: JP)
  Receive Date: 20230531
  Receipt Date: 20240209
  Transmission Date: 20240410
  Serious: Yes (Other)
  Sender: FDA-Public Use
  Company Number: JP-PFIZER INC-PV202300092468

PATIENT
  Age: 81 Year
  Sex: Male

DRUGS (1)
  1. BESPONSA [Suspect]
     Active Substance: INOTUZUMAB OZOGAMICIN
     Indication: Acute lymphocytic leukaemia
     Dosage: 0.5 MG/M2, 1X/DAY
     Route: 041

REACTIONS (2)
  - Thrombotic microangiopathy [Unknown]
  - Haemolytic anaemia [Unknown]
